FAERS Safety Report 4920741-7 (Version None)
Quarter: 2006Q1

REPORT INFORMATION
  Report Type: 
  Country: None (occurrence: None)
  Receive Date: 20060223
  Receipt Date: 20060214
  Transmission Date: 20060701
  Serious: Yes (Other)
  Sender: FDA-Public Use
  Company Number: BR-BOEHRINGER INGELHEIM PHARMACEUTICALS, INC.-2006-DE-00840GD

PATIENT

DRUGS (3)
  1. NEVIRAPINE [Suspect]
     Route: 015
  2. ZIDOVUDINE [Suspect]
     Route: 015
  3. LAMIVUDINE [Suspect]
     Route: 015

REACTIONS (3)
  - DRUG EXPOSURE DURING PREGNANCY [None]
  - MACROSOMIA [None]
  - NEONATAL DISORDER [None]
